FAERS Safety Report 4376053-6 (Version None)
Quarter: 2004Q2

REPORT INFORMATION
  Report Type: 
  Country: None (occurrence: None)
  Receive Date: 20040611
  Receipt Date: 20040607
  Transmission Date: 20050107
  Serious: Yes (Hospitalization)
  Sender: FDA-Public Use
  Company Number: CA-MERCK-0406CAN00040

PATIENT
  Age: 78 Year
  Sex: Male

DRUGS (4)
  1. AMLODIPINE BESYLATE [Concomitant]
     Route: 065
  2. ASPIRIN [Concomitant]
     Route: 065
  3. PROPAFENONE HYDROCHLORIDE [Concomitant]
     Route: 065
  4. VIOXX [Suspect]
     Route: 048
     Dates: start: 20020101, end: 20031001

REACTIONS (3)
  - HEART RATE DECREASED [None]
  - PULMONARY OEDEMA [None]
  - WEIGHT INCREASED [None]
